FAERS Safety Report 22801781 (Version 2)
Quarter: 2023Q4

REPORT INFORMATION
  Report Type: Spontaneous
  Country: US (occurrence: US)
  Receive Date: 20230809
  Receipt Date: 20231108
  Transmission Date: 20240110
  Serious: No
  Sender: FDA-Public Use
  Company Number: US-BRISTOL-MYERS SQUIBB COMPANY-2023-111874

PATIENT
  Age: 78 Year
  Sex: Male
  Weight: 81.65 kg

DRUGS (2)
  1. NIVOLUMAB [Suspect]
     Active Substance: NIVOLUMAB
     Indication: Malignant melanoma
     Dosage: DOSE : 1;     FREQ : PATIENT HAD 1 INFUSION; ROA: IV INFUSION
     Dates: start: 202301
  2. IPILIMUMAB [Suspect]
     Active Substance: IPILIMUMAB
     Indication: Malignant melanoma
     Dosage: DOSE : 1;     FREQ : PATIENT HAD 1 INFUSION; ROA: IV INFUSION
     Dates: start: 202301

REACTIONS (3)
  - Infusion related reaction [Recovered/Resolved]
  - Myalgia [Recovered/Resolved]
  - Movement disorder [Recovered/Resolved]

NARRATIVE: CASE EVENT DATE: 20230101
